FAERS Safety Report 6916673-5 (Version None)
Quarter: 2010Q3

REPORT INFORMATION
  Report Type: 
  Country: None (occurrence: None)
  Receive Date: 20100810
  Receipt Date: 20100802
  Transmission Date: 20110219
  Serious: Yes (Hospitalization, Other)
  Sender: FDA-Public Use
  Company Number: IL-ROCHE-718866

PATIENT
  Age: 81 Year
  Sex: Male

DRUGS (4)
  1. BEVACIZUMAB [Suspect]
     Indication: PRODUCT USED FOR UNKNOWN INDICATION
     Route: 031
  2. LOMEFLOXACIN [Concomitant]
     Route: 061
  3. OXYBUPROCAINE HYDROCHLORIDE [Concomitant]
  4. POVIDONE IODINE [Concomitant]

REACTIONS (2)
  - ENDOPHTHALMITIS [None]
  - EYE INFECTION BACTERIAL [None]
